FAERS Safety Report 7491912-3 (Version None)
Quarter: 2011Q1

REPORT INFORMATION
  Report Type: 
  Country: None (occurrence: None)
  Receive Date: 20110318
  Receipt Date: 20110304
  Transmission Date: 20110831
  Serious: Yes (Other)
  Sender: FDA-Public Use
  Company Number: 2-0810-63

PATIENT
  Sex: Male

DRUGS (3)
  1. DERMA-SMOOTHE/FS [Suspect]
     Indication: SCAB
     Dosage: TOPICAL
     Route: 061
  2. DERMA-SMOOTHE/FS [Suspect]
     Indication: SKIN EXFOLIATION
     Dosage: TOPICAL
     Route: 061
  3. MEDICATED SHAMPOO [Concomitant]

REACTIONS (1)
  - DRUG INEFFECTIVE [None]
